FAERS Safety Report 5114792-X (Version None)
Quarter: 2006Q3

REPORT INFORMATION
  Report Type: 
  Country: None (occurrence: None)
  Receive Date: 20060921
  Receipt Date: 20060906
  Transmission Date: 20061208
  Serious: Yes (Hospitalization)
  Sender: FDA-Public Use
  Company Number: 060906-0000795

PATIENT
  Age: 2 Year
  Sex: Male

DRUGS (5)
  1. DACTINOMYCIN [Suspect]
     Indication: NEPHROBLASTOMA
     Dosage: 540 MICROGRAM; IV
     Route: 042
     Dates: start: 20060714, end: 20060714
  2. VINCRISTINE SULFATE [Suspect]
     Indication: NEPHROBLASTOMA
     Dosage: 0.8 MG; IV
     Route: 042
     Dates: start: 20060714, end: 20060714
  3. NICARDIPINE           (NICARDIPINE) [Suspect]
     Indication: HYPERTENSION
     Dosage: 1 MG; IV
     Route: 042
     Dates: start: 20060714, end: 20060714
  4. LABETOLOL                  (LABETOLOL) [Suspect]
     Indication: HYPERTENSION
     Dosage: 1 MG; IV
     Route: 042
     Dates: start: 20060714, end: 20060714
  5. ONDANSETRON HCL [Suspect]
     Indication: PROPHYLAXIS OF NAUSEA AND VOMITING
     Dosage: 4 MG; IV
     Route: 042
     Dates: start: 20060714, end: 20060714

REACTIONS (4)
  - ERYTHEMA [None]
  - INJECTION SITE INFLAMMATION [None]
  - INJECTION SITE SWELLING [None]
  - OEDEMA PERIPHERAL [None]
